FAERS Safety Report 8164386-7 (Version None)
Quarter: 2012Q1

REPORT INFORMATION
  Report Type: 
  Country: None (occurrence: None)
  Receive Date: 20120224
  Receipt Date: 20110917
  Transmission Date: 20120608
  Serious: Yes (Death, Other)
  Sender: FDA-Public Use
  Company Number: PHHY2012DE013598

PATIENT

DRUGS (9)
  1. ACYCLOVIR [Concomitant]
  2. ITRACONAZOLE [Concomitant]
  3. EVEROLIMUS [Suspect]
  4. CYCLOSPORINE [Suspect]
  5. PLASMA [Concomitant]
  6. PREDNISOLONE [Concomitant]
     Dosage: 0.1 MG/KG
  7. METHYLPREDNISOLONE [Concomitant]
  8. COTRIM [Concomitant]
  9. MYCOPHENOLATE MOFETIL [Concomitant]

REACTIONS (4)
  - CIRCULATORY COLLAPSE [None]
  - HAEMOLYTIC URAEMIC SYNDROME [None]
  - RENAL FAILURE ACUTE [None]
  - BLOOD CREATININE INCREASED [None]
